FAERS Safety Report 9344522 (Version 1)
Quarter: 2013Q2

REPORT INFORMATION
  Report Type: Spontaneous
  Country: VE (occurrence: VE)
  Receive Date: 20130612
  Receipt Date: 20130612
  Transmission Date: 20140414
  Serious: Yes (Hospitalization, Other)
  Sender: FDA-Public Use
  Company Number: VE-ELI_LILLY_AND_COMPANY-VE201306001673

PATIENT
  Sex: Male

DRUGS (2)
  1. HUMALOG LISPRO [Suspect]
     Dosage: 23 IU, TID
  2. HUMALOG 25% LISPRO, 75% NPL [Suspect]
     Dosage: 23 IU, TID

REACTIONS (3)
  - Hyperglycaemia [Recovered/Resolved]
  - Wrong drug administered [Unknown]
  - Expired drug administered [Unknown]
